FAERS Safety Report 5535131-6 (Version None)
Quarter: 2007Q4

REPORT INFORMATION
  Report Type: 
  Country: None (occurrence: None)
  Receive Date: 20071203
  Receipt Date: 20071116
  Transmission Date: 20080405
  Serious: Yes (Other)
  Sender: FDA-Public Use
  Company Number: 100#03#2007-04825

PATIENT
  Sex: Male

DRUGS (3)
  1. TRAMADOL HCL [Suspect]
     Indication: DRUG USE FOR UNKNOWN INDICATION
     Dosage: 100 MG FOUR TIMES A DAY
  2. BUTRANS                                        (BUPRENORPHINE) [Suspect]
     Indication: ANALGESIA
     Dosage: 5 UG EVERY HOUR, TRANSDERMAL
     Route: 062
  3. MAXIMOL [Concomitant]

REACTIONS (2)
  - PARALYSIS [None]
  - SOMNOLENCE [None]
